FAERS Safety Report 11253448 (Version 1)
Quarter: 2015Q3

REPORT INFORMATION
  Report Type: Spontaneous
  Country: US (occurrence: US)
  Receive Date: 20150709
  Receipt Date: 20150709
  Transmission Date: 20151125
  Serious: Yes (Other)
  Sender: FDA-Public Use
  Company Number: US-ROCHE-1605594

PATIENT
  Sex: Female

DRUGS (1)
  1. XOLAIR [Suspect]
     Active Substance: OMALIZUMAB
     Indication: ASTHMA
     Route: 058
     Dates: start: 20150210

REACTIONS (5)
  - Upper-airway cough syndrome [Unknown]
  - Oropharyngeal pain [Unknown]
  - Nasopharyngitis [Unknown]
  - Sinusitis [Unknown]
  - Wheezing [Unknown]
